FAERS Safety Report 23496322 (Version 1)
Quarter: 2024Q1

REPORT INFORMATION
  Report Type: Spontaneous
  Country: US (occurrence: None)
  Receive Date: 20240207
  Receipt Date: 20240207
  Transmission Date: 20240409
  Serious: No
  Sender: FDA-Public Use
  Company Number: US-ROCHE-3410947

PATIENT
  Age: 47 Year
  Sex: Female
  Weight: 95.34 kg

DRUGS (5)
  1. XOLAIR [Suspect]
     Active Substance: OMALIZUMAB
     Indication: Asthma
     Route: 058
     Dates: start: 202303
  2. XOLAIR [Suspect]
     Active Substance: OMALIZUMAB
  3. XOLAIR [Suspect]
     Active Substance: OMALIZUMAB
  4. ALBUTEROL [Concomitant]
     Active Substance: ALBUTEROL
  5. PULMICORT TURBUHALER [Concomitant]
     Active Substance: BUDESONIDE

REACTIONS (6)
  - Underdose [Unknown]
  - Accidental exposure to product [Unknown]
  - Device issue [Unknown]
  - Syringe issue [Unknown]
  - No adverse event [Unknown]
  - Product complaint [Unknown]

NARRATIVE: CASE EVENT DATE: 20230822
